FAERS Safety Report 9397007 (Version 1)
Quarter: 2013Q3

REPORT INFORMATION
  Report Type: Spontaneous
  Country: US (occurrence: None)
  Receive Date: 20130710
  Receipt Date: 20130710
  Transmission Date: 20140515
  Serious: Yes (Other)
  Sender: FDA-Public Use
  Company Number: None

PATIENT
  Age: 37 Year
  Sex: Male
  Weight: 140.43 kg

DRUGS (1)
  1. XARELTO 15 MG JANSSEN [Suspect]
     Indication: PULMONARY EMBOLISM
     Dosage: 15 MG ONE TIME PO
     Route: 048
     Dates: start: 20130708, end: 20130708

REACTIONS (5)
  - Gastrointestinal haemorrhage [None]
  - Haemoglobin decreased [None]
  - Dizziness [None]
  - Tachycardia [None]
  - Haematocrit decreased [None]
